FAERS Safety Report 24228652 (Version 1)
Quarter: 2024Q3

REPORT INFORMATION
  Report Type: Spontaneous
  Country: US (occurrence: US)
  Receive Date: 20240820
  Receipt Date: 20240820
  Transmission Date: 20241016
  Serious: No
  Sender: ALKERMES
  Company Number: US-ALKERMES INC.-ALK-2024-002080

PATIENT
  Sex: Female

DRUGS (2)
  1. LYBALVI [Suspect]
     Active Substance: OLANZAPINE\SAMIDORPHAN L-MALATE
     Indication: Bipolar I disorder
     Dosage: 5/10 MILLIGRAM, QD
     Route: 048
     Dates: start: 20240807
  2. LITHIUM [Concomitant]
     Active Substance: LITHIUM
     Indication: Product used for unknown indication
     Dosage: 450 MILLIGRAM, UNKNOWN
     Route: 065
     Dates: end: 20240729

REACTIONS (2)
  - Palpitations [Unknown]
  - Heart rate increased [Unknown]

NARRATIVE: CASE EVENT DATE: 20240808
